FAERS Safety Report 5046851-4 (Version None)
Quarter: 2006Q2

REPORT INFORMATION
  Report Type: 
  Country: None (occurrence: None)
  Receive Date: 20060628
  Receipt Date: 20060622
  Transmission Date: 20061013
  Serious: Yes (Death)
  Sender: FDA-Public Use
  Company Number: GBWYE767322JUN06

PATIENT
  Sex: Male

DRUGS (4)
  1. EFFEXOR [Suspect]
  2. CODEINE PHOSPHATE (CODEINE PHOSPHATE, , 0) [Suspect]
  3. DIAZEPAM [Suspect]
  4. DICLOFENAC SODIUM [Suspect]

REACTIONS (2)
  - COMPLETED SUICIDE [None]
  - DRUG INTERACTION [None]
